FAERS Safety Report 9408144 (Version 1)
Quarter: 2013Q3

REPORT INFORMATION
  Report Type: Spontaneous
  Country: US (occurrence: US)
  Receive Date: 20130718
  Receipt Date: 20130718
  Transmission Date: 20140515
  Serious: Yes (Other)
  Sender: FDA-Public Use
  Company Number: US-PFIZER INC-2013208592

PATIENT
  Sex: Male
  Weight: 1.79 kg

DRUGS (3)
  1. MORPHINE SULFATE [Suspect]
     Indication: ANALGESIC THERAPY
     Dosage: 80 UG/KG, UNK
     Route: 042
  2. MORPHINE SULFATE [Suspect]
     Dosage: 80 UG/KG, UNK
  3. MIDAZOLAM [Concomitant]
     Indication: SEDATION
     Dosage: 80 UG/KG, UNK
     Route: 042

REACTIONS (3)
  - Hydronephrosis [Recovered/Resolved]
  - Urinary retention [Recovered/Resolved]
  - Blood creatinine increased [Recovered/Resolved]
